FAERS Safety Report 19754938 (Version 1)
Quarter: 2021Q3

REPORT INFORMATION
  Report Type: Spontaneous
  Country: US (occurrence: US)
  Receive Date: 20210824
  Receipt Date: 20210824
  Transmission Date: 20211014
  Serious: No
  Sender: FDA-Public Use
  Company Number: None

PATIENT
  Age: 73 Year
  Sex: Female

DRUGS (1)
  1. PLEGRIDY [Suspect]
     Active Substance: PEGINTERFERON BETA-1A
     Indication: MULTIPLE SCLEROSIS
     Dosage: ?          OTHER STRENGTH:125MG/.5 ;?
     Route: 058
     Dates: start: 201507

REACTIONS (3)
  - Needle issue [None]
  - Drug delivery system malfunction [None]
  - Product dose omission issue [None]

NARRATIVE: CASE EVENT DATE: 20210618
